FAERS Safety Report 4288754-9 (Version None)
Quarter: 2004Q1

REPORT INFORMATION
  Report Type: 
  Country: None (occurrence: None)
  Receive Date: 20040205
  Receipt Date: 19960716
  Transmission Date: 20041129
  Serious: Yes (Hospitalization)
  Sender: FDA-Public Use
  Company Number: MYVW-UK-0401S-0006 (0)

PATIENT
  Age: 65 Year
  Sex: Male

DRUGS (2)
  1. MYOVIEW [Suspect]
     Dosage: 500 MBQ, SINGLE DOSE, I.V.
     Route: 042
     Dates: start: 19960702, end: 19960702
  2. TECHNENIUM 99 GENERATOR [Concomitant]

REACTIONS (4)
  - DIFFICULTY IN WALKING [None]
  - DIZZINESS [None]
  - HEADACHE [None]
  - PARAESTHESIA [None]
